FAERS Safety Report 24844205 (Version 2)
Quarter: 2025Q3

REPORT INFORMATION
  Report Type: Spontaneous
  Country: EU (occurrence: EU)
  Receive Date: 20250115
  Receipt Date: 20250803
  Transmission Date: 20251021
  Serious: Yes (Hospitalization, Other)
  Sender: ALEXION PHARMACEUTICALS
  Company Number: None

PATIENT
  Age: 2 Month
  Sex: Female

DRUGS (1)
  1. BEYFORTUS [Suspect]
     Active Substance: NIRSEVIMAB-ALIP
     Indication: Prophylaxis
     Route: 065
     Dates: start: 20240918, end: 20240918

REACTIONS (2)
  - Drug ineffective [Unknown]
  - Bronchiolitis [Recovered/Resolved]

NARRATIVE: CASE EVENT DATE: 20241031
